FAERS Safety Report 19967022 (Version 7)
Quarter: 2022Q1

REPORT INFORMATION
  Report Type: Report from Study
  Country: JP (occurrence: JP)
  Receive Date: 20211019
  Receipt Date: 20220328
  Transmission Date: 20220423
  Serious: Yes (Life-Threatening, Hospitalization, Other)
  Sender: FDA-Public Use
  Company Number: JP-TAKEDA-2021TJP005632

PATIENT
  Age: 12 Year
  Sex: Female

DRUGS (7)
  1. ICATIBANT [Suspect]
     Active Substance: ICATIBANT ACETATE
     Indication: Hereditary angioedema
     Dosage: 30 MILLIGRAM
     Route: 058
  2. ICATIBANT [Suspect]
     Active Substance: ICATIBANT ACETATE
     Indication: Hereditary angioedema
     Dosage: 30 MILLIGRAM
     Route: 058
  3. ICATIBANT [Suspect]
     Active Substance: ICATIBANT ACETATE
     Dosage: 20 MILLIGRAM
     Route: 058
     Dates: start: 202009
  4. ICATIBANT [Suspect]
     Active Substance: ICATIBANT ACETATE
     Dosage: 20 MILLIGRAM
     Route: 058
     Dates: start: 202009
  5. ORLADEYO [Concomitant]
     Active Substance: BEROTRALSTAT HYDROCHLORIDE
     Indication: Product used for unknown indication
     Route: 065
  6. LANSOPRAZOLE [Concomitant]
     Active Substance: LANSOPRAZOLE
     Indication: Hereditary angioedema
     Route: 065
  7. TRANSAMIN [Concomitant]
     Active Substance: TRANEXAMIC ACID
     Indication: Hereditary angioedema
     Route: 065

REACTIONS (14)
  - Brain oedema [Recovering/Resolving]
  - Laryngeal stenosis [Recovering/Resolving]
  - Hereditary angioedema [Unknown]
  - Nausea [Unknown]
  - Vomiting [Unknown]
  - Diarrhoea [Unknown]
  - Dysmenorrhoea [Unknown]
  - Hereditary angioedema [Unknown]
  - Drug ineffective [Unknown]
  - Adjustment disorder [Unknown]
  - Dizziness [Unknown]
  - Joint dislocation [Unknown]
  - Product use complaint [Unknown]
  - Off label use [Unknown]

NARRATIVE: CASE EVENT DATE: 20210605
